FAERS Safety Report 7545060-4 (Version None)
Quarter: 2011Q2

REPORT INFORMATION
  Report Type: 
  Country: None (occurrence: None)
  Receive Date: 20110614
  Receipt Date: 20110526
  Transmission Date: 20111010
  Serious: Yes (Hospitalization, Other)
  Sender: FDA-Public Use
  Company Number: US-BAYER-201014450NA

PATIENT
  Age: 31 Year
  Sex: Female
  Weight: 59 kg

DRUGS (13)
  1. YAZ [Suspect]
     Indication: MENSTRUAL CYCLE MANAGEMENT
  2. YASMIN [Suspect]
     Indication: PREMENSTRUAL SYNDROME
     Dosage: 1 DF, QD
     Route: 048
     Dates: start: 20060101, end: 20061101
  3. HYDROCHLOROTHIAZIDE [Concomitant]
  4. BENICAR [Concomitant]
  5. YAZ [Suspect]
     Indication: ACNE
  6. YASMIN [Suspect]
     Indication: CONTRACEPTION
  7. NEXIUM [Concomitant]
     Indication: GASTROOESOPHAGEAL REFLUX DISEASE
     Dosage: UNK
     Route: 042
     Dates: start: 20070110
  8. YASMIN [Suspect]
     Indication: ACNE
  9. YASMIN [Suspect]
     Indication: MENSTRUAL CYCLE MANAGEMENT
  10. PROVERA [Concomitant]
  11. YAZ [Suspect]
     Indication: PREMENSTRUAL SYNDROME
     Dosage: 1 DF, QD
     Route: 048
     Dates: start: 20070101, end: 20090101
  12. YAZ [Suspect]
     Indication: CONTRACEPTION
  13. LORTAB [Concomitant]
     Indication: GASTROOESOPHAGEAL REFLUX DISEASE
     Dosage: 7.5/500
     Dates: start: 20070110

REACTIONS (10)
  - MENORRHAGIA [None]
  - NAUSEA [None]
  - HYPERTENSION [None]
  - VOMITING [None]
  - GASTROENTERITIS [None]
  - DIARRHOEA [None]
  - CHOLECYSTITIS CHRONIC [None]
  - ABDOMINAL PAIN [None]
  - THROMBOSIS [None]
  - FOOD INTOLERANCE [None]
